FAERS Safety Report 8787267 (Version 1)
Quarter: 2012Q4

REPORT INFORMATION
  Report Type: 
  Country: US (occurrence: US)
  Receive Date: 20120914
  Receipt Date: 20120914
  Transmission Date: 20130627
  Serious: No
  Sender: FDA-Public Use
  Company Number: US-VERTEX PHARMACEUTICAL INC.-AE-2012-010844

PATIENT

DRUGS (4)
  1. INCIVEK [Suspect]
     Indication: HEPATITIS C
     Route: 048
     Dates: start: 201205, end: 20120720
  2. PEGASYS [Concomitant]
     Indication: HEPATITIS C
     Route: 058
     Dates: start: 201205
  3. RIBAVIRIN [Concomitant]
     Indication: HEPATITIS C
     Dates: start: 201205, end: 201207
  4. RIBAVIRIN [Concomitant]
     Dates: start: 201207

REACTIONS (2)
  - Rash generalised [Not Recovered/Not Resolved]
  - Anaemia [Not Recovered/Not Resolved]
